FAERS Safety Report 24157846 (Version 4)
Quarter: 2024Q4

REPORT INFORMATION
  Report Type: Spontaneous
  Country: US (occurrence: US)
  Receive Date: 20240731
  Receipt Date: 20241118
  Transmission Date: 20250115
  Serious: Yes (Other)
  Sender: SANOFI AVENTIS
  Company Number: US-SA-SAC20240729000450

PATIENT
  Age: 45 Year
  Sex: Male

DRUGS (1)
  1. DUPIXENT [Suspect]
     Active Substance: DUPILUMAB
     Indication: Nasal polyps
     Dosage: 300 MG, QOW
     Route: 058
     Dates: start: 202406

REACTIONS (18)
  - Pain [Not Recovered/Not Resolved]
  - Rhinorrhoea [Not Recovered/Not Resolved]
  - Nasal congestion [Recovering/Resolving]
  - Nasal pruritus [Not Recovered/Not Resolved]
  - Eye irritation [Unknown]
  - Eye swelling [Recovering/Resolving]
  - Lacrimation increased [Not Recovered/Not Resolved]
  - Rhinalgia [Unknown]
  - Pyrexia [Unknown]
  - Scab [Unknown]
  - Feeling abnormal [Unknown]
  - Night sweats [Unknown]
  - Condition aggravated [Unknown]
  - Chills [Unknown]
  - Epistaxis [Unknown]
  - Ocular hyperaemia [Recovered/Resolved]
  - Condition aggravated [Recovered/Resolved]
  - Conjunctivitis [Recovered/Resolved]

NARRATIVE: CASE EVENT DATE: 20240101
